FAERS Safety Report 13321160 (Version 1)
Quarter: 2017Q1

REPORT INFORMATION
  Report Type: Spontaneous
  Country: US (occurrence: US)
  Receive Date: 20170310
  Receipt Date: 20170310
  Transmission Date: 20170428
  Serious: Yes (Disabling)
  Sender: FDA-Public Use
  Company Number: None

PATIENT
  Age: 33 Year
  Sex: Male
  Weight: 128.2 kg

DRUGS (2)
  1. DEPECOTE GENERIC VERSION [Suspect]
     Active Substance: DIVALPROEX SODIUM
     Indication: CRIME
     Dosage: ?          QUANTITY:2 CAPSULE(S);?
     Route: 048
     Dates: start: 20150615, end: 20160715
  2. RESPRIDONE [Concomitant]

REACTIONS (1)
  - Muscle disorder [None]

NARRATIVE: CASE EVENT DATE: 20150617
